FAERS Safety Report 25375151 (Version 1)
Quarter: 2025Q2

REPORT INFORMATION
  Report Type: Spontaneous
  Country: US (occurrence: None)
  Receive Date: 20250528
  Receipt Date: 20250528
  Transmission Date: 20250717
  Serious: Yes (Other)
  Sender: FDA-CTU
  Company Number: None

PATIENT

DRUGS (2)
  1. SUNFORGETTABLE TOTAL PROTECTION FACE SHIELD FLEX [Suspect]
     Active Substance: ZINC OXIDE
  2. SUNFORGETTABLE TOTAL PROTECTION FACE SHIELD GLOW [Suspect]
     Active Substance: ZINC OXIDE

REACTIONS (1)
  - Hypersensitivity [None]
